FAERS Safety Report 8857837 (Version 1)
Quarter: 2012Q4

REPORT INFORMATION
  Report Type: 
  Country: US (occurrence: US)
  Receive Date: 20121024
  Receipt Date: 20121024
  Transmission Date: 20130627
  Serious: No
  Sender: FDA-Public Use
  Company Number: US-AMGEN-USASP2011065372

PATIENT
  Age: 34 Year
  Sex: Female

DRUGS (3)
  1. ENBREL [Suspect]
     Indication: PSORIATIC ARTHROPATHY
     Dosage: 50 mg, qwk
     Dates: start: 200001
  2. ENBREL [Suspect]
     Indication: PSORIASIS
  3. PRENATAL VITAMINS                  /01549301/ [Concomitant]
     Route: 048

REACTIONS (1)
  - Psoriatic arthropathy [Recovered/Resolved]
